FAERS Safety Report 23892637 (Version 1)
Quarter: 2024Q2

REPORT INFORMATION
  Report Type: Report from Study
  Country: NL (occurrence: NL)
  Receive Date: 20240524
  Receipt Date: 20240524
  Transmission Date: 20240716
  Serious: Yes (Death)
  Sender: FDA-Public Use
  Company Number: NL-ABBVIE-5772287

PATIENT
  Age: 86 Year
  Sex: Male

DRUGS (7)
  1. CARBIDOPA\LEVODOPA [Suspect]
     Active Substance: CARBIDOPA\LEVODOPA
     Indication: Parkinson^s disease
     Route: 050
     Dates: start: 20180410
  2. CARBIDOPA\LEVODOPA [Suspect]
     Active Substance: CARBIDOPA\LEVODOPA
     Dosage: MD: 11.0ML, CD: 2.1ML/H, ED: 2.0ML, DURATION TEXT: REMAINS AT 16 HOURS
     Route: 050
     Dates: start: 20230906, end: 20240202
  3. CARBIDOPA\LEVODOPA [Suspect]
     Active Substance: CARBIDOPA\LEVODOPA
     Dosage: MD: 11.0ML, CD: 2.1ML/H, ED: 2.0ML, DURATION TEXT: REMAINS AT 16 HOURS, LAST ADMIN DATE: 2024
     Route: 050
     Dates: start: 20240202
  4. POLYETHYLENE GLYCOLS [Concomitant]
     Active Substance: POLYETHYLENE GLYCOLS
     Indication: Abnormal faeces
  5. FUCIDIN [Concomitant]
     Active Substance: FUSIDATE SODIUM
     Indication: Stoma complication
  6. TERRA-CORTRIL [Concomitant]
     Active Substance: HYDROCORTISONE ACETATE\OXYTETRACYCLINE HYDROCHLORIDE
     Indication: Stoma complication
  7. CARBIDOPA\LEVODOPA [Concomitant]
     Active Substance: CARBIDOPA\LEVODOPA
     Indication: Product used for unknown indication
     Dosage: 100/25 MG

REACTIONS (4)
  - Death [Fatal]
  - Fall [Unknown]
  - Pneumonia [Recovered/Resolved]
  - Hip fracture [Recovered/Resolved]

NARRATIVE: CASE EVENT DATE: 20240518
